FAERS Safety Report 4877308-9 (Version None)
Quarter: 2006Q1

REPORT INFORMATION
  Report Type: 
  Country: None (occurrence: None)
  Receive Date: 20060109
  Receipt Date: 20060103
  Transmission Date: 20060701
  Serious: Yes (Other)
  Sender: FDA-Public Use
  Company Number: 2006-01-0009

PATIENT
  Age: 14 Year
  Sex: Male

DRUGS (2)
  1. AERIUS (DESLORATADINE) TABLETS [Suspect]
     Indication: RHINITIS ALLERGIC
     Dosage: 5 MG QD ORAL
     Route: 048
     Dates: start: 20051010
  2. LIVOSTIN NASAL SUSPENSION [Concomitant]

REACTIONS (5)
  - ABDOMINAL PAIN [None]
  - DRY MOUTH [None]
  - FATIGUE [None]
  - HEADACHE [None]
  - NAUSEA [None]
